FAERS Safety Report 8549929-3 (Version None)
Quarter: 2012Q3

REPORT INFORMATION
  Report Type: 
  Country: None (occurrence: None)
  Receive Date: 20120730
  Receipt Date: 20120719
  Transmission Date: 20120928
  Serious: Yes (Other)
  Sender: FDA-Public Use
  Company Number: CN-ASTRAZENECA-2012SE50743

PATIENT
  Age: 11 Year
  Sex: Male

DRUGS (1)
  1. PULMICORT [Suspect]
     Indication: ASTHMA
     Route: 055
     Dates: start: 20110101

REACTIONS (4)
  - COUGH [None]
  - PYREXIA [None]
  - TONSILLAR INFLAMMATION [None]
  - WHITE BLOOD CELL COUNT DECREASED [None]
